FAERS Safety Report 9204240 (Version 2)
Quarter: 2013Q2

REPORT INFORMATION
  Report Type: Spontaneous
  Country: US (occurrence: US)
  Receive Date: 20130402
  Receipt Date: 20130404
  Transmission Date: 20140414
  Serious: Yes (Other)
  Sender: FDA-Public Use
  Company Number: US-ELI_LILLY_AND_COMPANY-US201303008784

PATIENT
  Sex: Male

DRUGS (13)
  1. HUMALOG LISPRO [Suspect]
     Indication: DIABETES MELLITUS
  2. HUMALOG LISPRO [Suspect]
     Indication: DIABETES MELLITUS
     Dosage: UNK
     Dates: start: 201303
  3. NASONEX [Concomitant]
     Dosage: 2 DF, BID
  4. NITROSTAT [Concomitant]
     Dosage: 4 MG, PRN
  5. LANTUS [Concomitant]
     Dosage: 10 U, BID
  6. HYDROCODONE [Concomitant]
     Dosage: 10500 DF, BID
  7. IPRATROPIUM BROMIDE [Concomitant]
     Dosage: 21 MG, TID
  8. LASIX [Concomitant]
     Dosage: 40 MG, QD
  9. LYRICA [Concomitant]
     Dosage: 100 MG, TID
  10. VITAMIN D2 [Concomitant]
     Dosage: 1.25 MG, WEEKLY (1/W)
  11. RANITIDINE HCL [Concomitant]
     Dosage: 0.1 MG, TID
  12. ALLOPURINOL [Concomitant]
     Dosage: 100 MG, QD
  13. NITRO                              /00003201/ [Concomitant]
     Dosage: UNK, PRN

REACTIONS (4)
  - Hepatic failure [Not Recovered/Not Resolved]
  - Visual impairment [Not Recovered/Not Resolved]
  - Hernia [Not Recovered/Not Resolved]
  - Abdominal distension [Not Recovered/Not Resolved]
